FAERS Safety Report 4692119-5 (Version None)
Quarter: 2005Q2

REPORT INFORMATION
  Report Type: 
  Country: None (occurrence: None)
  Receive Date: 20050614
  Receipt Date: 20050602
  Transmission Date: 20051028
  Serious: Yes (Other)
  Sender: FDA-Public Use
  Company Number: 2005083853

PATIENT
  Age: 67 Year
  Sex: Male
  Weight: 97.0698 kg

DRUGS (6)
  1. LIPITOR [Suspect]
     Indication: BLOOD CHOLESTEROL INCREASED
     Dosage: 20 MG (20 MG 1 IN 1 D)ORAL
     Route: 048
     Dates: start: 20010101
  2. VITAMIN E [Concomitant]
  3. SAW PALMETTO (SAW PALMETTO) [Concomitant]
  4. MULTIVITAMIN [Concomitant]
  5. OMEGA 3 (FISH OIL) [Concomitant]
  6. ACETYLSALICYLIC ACID SRT [Concomitant]

REACTIONS (19)
  - BLOOD CREATINE PHOSPHOKINASE INCREASED [None]
  - BLOOD CREATINE PHOSPHOKINASE MB INCREASED [None]
  - BLOOD GLUCOSE INCREASED [None]
  - CARDIOMEGALY [None]
  - DEAFNESS [None]
  - DEATH OF PARENT [None]
  - DEATH OF SIBLING [None]
  - ECHOCARDIOGRAM ABNORMAL [None]
  - FATIGUE [None]
  - FEELING ABNORMAL [None]
  - GASTROOESOPHAGEAL REFLUX DISEASE [None]
  - MOBILITY DECREASED [None]
  - MUSCLE SPASMS [None]
  - MYALGIA [None]
  - PAIN IN EXTREMITY [None]
  - PARAESTHESIA [None]
  - ROTATOR CUFF SYNDROME [None]
  - STRESS [None]
  - VENTRICULAR EXTRASYSTOLES [None]
